FAERS Safety Report 4401173-7 (Version None)
Quarter: 2004Q3

REPORT INFORMATION
  Report Type: 
  Country: None (occurrence: None)
  Receive Date: 20040907
  Receipt Date: 20031202
  Transmission Date: 20050211
  Serious: No
  Sender: FDA-Public Use
  Company Number: US-BRISTOL-MYERS SQUIBB COMPANY-12448346

PATIENT
  Age: 38 Year
  Sex: Male

DRUGS (1)
  1. COUMADIN [Suspect]
     Indication: DEEP VEIN THROMBOSIS
     Dosage: 7.5 MG FIRST DAY AND THEN REDUCED TO 5 MG ON THE SECOND AND THIRD DAY.
     Route: 048

REACTIONS (1)
  - BACK PAIN [None]
